FAERS Safety Report 13488235 (Version 3)
Quarter: 2017Q3

REPORT INFORMATION
  Report Type: Report from Study
  Country: US (occurrence: US)
  Receive Date: 20170426
  Receipt Date: 20170718
  Transmission Date: 20171127
  Serious: Yes (Other)
  Sender: FDA-Public Use
  Company Number: US-ACTELION-A-NJ2016-131955

PATIENT
  Age: 60 Year
  Sex: Female
  Weight: 62.59 kg

DRUGS (9)
  1. LETAIRIS [Concomitant]
     Active Substance: AMBRISENTAN
     Dosage: 5 MG, UNK
  2. OPSUMIT [Suspect]
     Active Substance: MACITENTAN
     Indication: PULMONARY ARTERIAL HYPERTENSION
     Dosage: 10 MG, QD
     Route: 048
     Dates: start: 20160630
  3. VELETRI [Suspect]
     Active Substance: EPOPROSTENOL
     Dosage: 30 NG/KG, PER MIN
     Route: 042
  4. VELETRI [Suspect]
     Active Substance: EPOPROSTENOL
     Dosage: 12 NG/KG, PER MIN
     Route: 042
     Dates: start: 20160208
  5. FLOLAN [Suspect]
     Active Substance: EPOPROSTENOL SODIUM
     Indication: PRODUCT USED FOR UNKNOWN INDICATION
     Dosage: UNK
     Route: 065
     Dates: start: 20160401
  6. ADEMPAS [Suspect]
     Active Substance: RIOCIGUAT
     Indication: PRODUCT USED FOR UNKNOWN INDICATION
     Route: 065
  7. LASIX [Concomitant]
     Active Substance: FUROSEMIDE
     Dosage: 20 MG, QD
     Route: 048
  8. VELETRI [Suspect]
     Active Substance: EPOPROSTENOL
     Indication: PULMONARY ARTERIAL HYPERTENSION
     Dosage: 31 NG/KG, PER MIN
     Route: 042
     Dates: start: 20161018
  9. VELETRI [Suspect]
     Active Substance: EPOPROSTENOL
     Dosage: 20 NG/KG, PER MIN
     Route: 042

REACTIONS (47)
  - Platelet count decreased [Unknown]
  - Road traffic accident [Unknown]
  - Limb injury [Unknown]
  - Flushing [Unknown]
  - Catheter site pain [Unknown]
  - Weight decreased [Unknown]
  - Catheter site dryness [Unknown]
  - Catheter site pruritus [Unknown]
  - Dyspnoea exertional [Recovering/Resolving]
  - Drug administration error [Unknown]
  - Gingival bleeding [Unknown]
  - Influenza [Not Recovered/Not Resolved]
  - Haematocrit decreased [Unknown]
  - Hypertension [Unknown]
  - Erythema [Unknown]
  - Oedema peripheral [Recovering/Resolving]
  - Headache [Unknown]
  - Swelling [Recovering/Resolving]
  - Diarrhoea [Unknown]
  - Scab [Unknown]
  - Abdominal distension [Unknown]
  - Swelling face [Recovering/Resolving]
  - Alopecia [Unknown]
  - Gait disturbance [Unknown]
  - Device infusion issue [Unknown]
  - Catheter site erythema [Unknown]
  - Epistaxis [Unknown]
  - Decreased appetite [Not Recovered/Not Resolved]
  - Vomiting [Unknown]
  - Anaemia [Not Recovered/Not Resolved]
  - Biopsy bone marrow [Unknown]
  - Drug dose omission [Unknown]
  - Facial pain [Unknown]
  - Nausea [Unknown]
  - Red blood cell count decreased [Not Recovered/Not Resolved]
  - Pain [Unknown]
  - Rash [Unknown]
  - Fatigue [Unknown]
  - Pruritus [Unknown]
  - Device dislocation [Unknown]
  - CREST syndrome [Unknown]
  - Haemoglobin decreased [Not Recovered/Not Resolved]
  - Back pain [Unknown]
  - Pain in jaw [Unknown]
  - Arthralgia [Unknown]
  - Swelling [Unknown]
  - Catheter site scab [Unknown]

NARRATIVE: CASE EVENT DATE: 20160514
